FAERS Safety Report 5866526-9 (Version None)
Quarter: 2008Q3

REPORT INFORMATION
  Report Type: 
  Country: None (occurrence: None)
  Receive Date: 20080902
  Receipt Date: 20080902
  Transmission Date: 20090109
  Serious: Yes (Hospitalization)
  Sender: FDA-Public Use
  Company Number: PHEH1995US01280

PATIENT
  Sex: Male

DRUGS (16)
  1. OXYBUTYNIN CHLORIDE [Suspect]
     Route: 048
     Dates: start: 19951018
  2. IMURAN [Concomitant]
  3. PREDNISONE TAB [Concomitant]
  4. MYCOSTATIN [Concomitant]
  5. ZANTAC [Concomitant]
  6. COUMADIN [Concomitant]
  7. FERROSEQUELS (FERRO-SEQUELS) [Concomitant]
  8. GLUCOTROL [Concomitant]
  9. DRISDOL [Concomitant]
  10. OSCAL (CALCIUM CARBONATE) [Concomitant]
  11. TEGRETOL [Concomitant]
  12. CALCITRIOL [Concomitant]
  13. COLACE (DOCUSATE SODIUM) [Concomitant]
  14. SOLU-CORTEF [Concomitant]
  15. VANCO (VANCOMYCIN HYDROCHLORIDE) [Concomitant]
  16. CEFTIN [Concomitant]

REACTIONS (2)
  - PYREXIA [None]
  - URINARY TRACT INFECTION [None]
